FAERS Safety Report 5080487-4 (Version None)
Quarter: 2006Q3

REPORT INFORMATION
  Report Type: 
  Country: None (occurrence: None)
  Receive Date: 20060809
  Receipt Date: 20060801
  Transmission Date: 20061208
  Serious: Yes (Hospitalization, Disabling, Other)
  Sender: FDA-Public Use
  Company Number: 2005-12-1315

PATIENT
  Age: 58 Year
  Sex: Male
  Weight: 61 kg

DRUGS (6)
  1. INTRON A (INTERERON ALFA-2B RECOMBINANT)  INJECTABLE POWDER [Suspect]
     Indication: RENAL CELL CARCINOMA STAGE UNSPECIFIED
     Dosage: 6 MU 6X/W* INTRAMUSCULAR
     Route: 030
     Dates: start: 20050328, end: 20050921
  2. INTRON A (INTERERON ALFA-2B RECOMBINANT)  INJECTABLE POWDER [Suspect]
     Indication: RENAL CELL CARCINOMA STAGE UNSPECIFIED
     Dosage: 6 MU 6X/W* INTRAMUSCULAR
     Route: 030
     Dates: start: 20051024, end: 20051124
  3. CANCER VACCINE INJECTABLE [Suspect]
     Indication: RENAL CELL CARCINOMA STAGE UNSPECIFIED
     Dosage: SUBCUTANEOUS
     Route: 058
     Dates: start: 20050413, end: 20051220
  4. TAGAMET [Suspect]
     Indication: IMMUNE SYSTEM DISORDER
     Dosage: 600 MG ORAL
     Route: 048
     Dates: start: 20050228, end: 20051220
  5. CINAL [Concomitant]
  6. HERBAL MEDICATION NOS GRANULES [Concomitant]

REACTIONS (8)
  - IMMUNE SYSTEM DISORDER [None]
  - INTERSTITIAL LUNG DISEASE [None]
  - METASTASES TO LUNG [None]
  - NEPHRECTOMY [None]
  - NEPHROTIC SYNDROME [None]
  - PYODERMA GANGRENOSUM [None]
  - RENAL IMPAIRMENT [None]
  - SUTURE RELATED COMPLICATION [None]
